FAERS Safety Report 5705254-7 (Version None)
Quarter: 2008Q2

REPORT INFORMATION
  Report Type: 
  Country: None (occurrence: None)
  Receive Date: 20080410
  Receipt Date: 20080401
  Transmission Date: 20081010
  Serious: Yes (Hospitalization)
  Sender: FDA-Public Use
  Company Number: 2008-02185

PATIENT
  Age: 4 Year
  Sex: Female
  Weight: 20 kg

DRUGS (3)
  1. FIORICET [Suspect]
     Indication: OTITIS MEDIA
     Dosage: 2400MG DIVIDED DOSES OVER 72H, 2800 MG, OVER 17 H (140MG/KG)
  2. FIORICET [Suspect]
     Indication: OTITIS MEDIA
     Dosage: 2400MG DIVIDED DOSES OVER 72H, 2800 MG, OVER 17 H (140MG/KG)
  3. CEFACLOR [Concomitant]

REACTIONS (1)
  - HEPATOTOXICITY [None]
